FAERS Safety Report 20388092 (Version 2)
Quarter: 2022Q1

REPORT INFORMATION
  Report Type: Report from Study
  Country: CO (occurrence: CO)
  Receive Date: 20220128
  Receipt Date: 20220203
  Transmission Date: 20220423
  Serious: Yes (Hospitalization, Other)
  Sender: FDA-Public Use
  Company Number: CO-ABBVIE-22K-036-4240652-00

PATIENT
  Age: 69 Year
  Sex: Female
  Weight: 44 kg

DRUGS (5)
  1. VENCLEXTA [Suspect]
     Active Substance: VENETOCLAX
     Indication: Acute myeloid leukaemia
     Route: 048
     Dates: start: 20211126, end: 20220117
  2. VENCLEXTA [Suspect]
     Active Substance: VENETOCLAX
     Route: 048
     Dates: start: 20220120, end: 202201
  3. VENCLEXTA [Suspect]
     Active Substance: VENETOCLAX
     Route: 048
     Dates: start: 20220129
  4. AZACITIDINE [Concomitant]
     Active Substance: AZACITIDINE
     Indication: Neoplasm prophylaxis
     Route: 058
     Dates: start: 20220120
  5. AZACITIDINE [Concomitant]
     Active Substance: AZACITIDINE
     Indication: Chemotherapy

REACTIONS (2)
  - Urinary tract infection [Recovered/Resolved]
  - Neutropenia [Recovering/Resolving]

NARRATIVE: CASE EVENT DATE: 20220117
